FAERS Safety Report 4974104-9 (Version None)
Quarter: 2006Q1

REPORT INFORMATION
  Report Type: 
  Country: None (occurrence: None)
  Receive Date: 20060130
  Receipt Date: 20050816
  Transmission Date: 20060701
  Serious: No
  Sender: FDA-Public Use
  Company Number: COT-0323_2005

PATIENT
  Age: 47 Year
  Sex: Male
  Weight: 120.6568 kg

DRUGS (13)
  1. VENTAVIS [Suspect]
     Indication: PULMONARY HYPERTENSION
     Dosage: 5 MCG 6 TO 9X/DAY IH
     Route: 055
     Dates: start: 20050725, end: 20051018
  2. VENTAVIS [Suspect]
     Indication: PULMONARY HYPERTENSION
     Dosage: 5 MCG 6TO9X DAY IH
     Route: 055
     Dates: start: 20050725, end: 20051018
  3. VENTAVIS [Suspect]
     Indication: PULMONARY HYPERTENSION
     Dosage: 5 MCG VARIABLE IH
     Route: 055
     Dates: start: 20051018
  4. VENTAVIS [Suspect]
     Indication: PULMONARY HYPERTENSION
     Dosage: 2.5 MCG ONCE IH
     Route: 055
     Dates: start: 20050725, end: 20050725
  5. REMODULIN [Concomitant]
  6. PLO-GEL [Concomitant]
  7. KETOPROFEN [Concomitant]
  8. LIDOCAINE [Concomitant]
  9. GABAPENTIN [Concomitant]
  10. KETAMINE HCL [Concomitant]
  11. FUROSEMIDE [Concomitant]
  12. NORVASC [Concomitant]
  13. WARFARIN SODIUM [Concomitant]

REACTIONS (4)
  - BRONCHITIS [None]
  - COUGH [None]
  - GLOSSODYNIA [None]
  - NAUSEA [None]
